FAERS Safety Report 10144098 (Version 1)
Quarter: 2014Q2

REPORT INFORMATION
  Report Type: Spontaneous
  Country: US (occurrence: US)
  Receive Date: 20140430
  Receipt Date: 20140430
  Transmission Date: 20141212
  Serious: Yes (Other)
  Sender: FDA-Public Use
  Company Number: US-BAYER-2014-060397

PATIENT
  Age: 32 Year
  Sex: Female

DRUGS (2)
  1. GADAVIST [Suspect]
     Indication: NERVOUS SYSTEM DISORDER
     Dosage: 5.5 ML, ONCE
     Dates: start: 20140422, end: 20140422
  2. GADAVIST [Suspect]
     Indication: NUCLEAR MAGNETIC RESONANCE IMAGING

REACTIONS (3)
  - Convulsion [None]
  - Palpitations [None]
  - Asthma [None]
